FAERS Safety Report 21856853 (Version 1)
Quarter: 2023Q1

REPORT INFORMATION
  Report Type: Spontaneous
  Country: US (occurrence: US)
  Receive Date: 20230113
  Receipt Date: 20230113
  Transmission Date: 20230418
  Serious: Yes (Other)
  Sender: FDA-Public Use
  Company Number: None

PATIENT
  Age: 7 Decade
  Sex: Female

DRUGS (1)
  1. DOCETAXEL [Suspect]
     Active Substance: DOCETAXEL
     Indication: Lung carcinoma cell type unspecified recurrent
     Dosage: EVERY 3 WEEKS
     Route: 042

REACTIONS (2)
  - Fatigue [Unknown]
  - Therapy partial responder [Unknown]
